FAERS Safety Report 16132499 (Version 1)
Quarter: 2019Q2

REPORT INFORMATION
  Report Type: Spontaneous
  Country: US (occurrence: US)
  Receive Date: 20190328
  Receipt Date: 20190328
  Transmission Date: 20190711
  Serious: Yes (Hospitalization)
  Sender: FDA-Public Use
  Company Number: None

PATIENT
  Age: 64 Year
  Sex: Male
  Weight: 79.9 kg

DRUGS (1)
  1. DOXORUBICIN HYDROCHLORIDE LIPOSOME [Suspect]
     Active Substance: DOXORUBICIN HYDROCHLORIDE
     Indication: KAPOSI^S SARCOMA
     Dosage: ?          OTHER FREQUENCY:EVERY 28 DAYS;?
     Route: 042

REACTIONS (2)
  - Infusion related reaction [None]
  - Oral pruritus [None]

NARRATIVE: CASE EVENT DATE: 20190326
